FAERS Safety Report 7436048-2 (Version None)
Quarter: 2011Q2

REPORT INFORMATION
  Report Type: 
  Country: None (occurrence: None)
  Receive Date: 20110425
  Receipt Date: 20110411
  Transmission Date: 20111010
  Serious: Yes (Other)
  Sender: FDA-Public Use
  Company Number: JP-ASTRAZENECA-2011SE22751

PATIENT
  Age: 8 Year
  Sex: Male

DRUGS (8)
  1. MEROPENEM [Suspect]
     Indication: FEBRILE NEUTROPENIA
     Route: 042
     Dates: start: 20101201, end: 20101213
  2. CISPLATIN [Concomitant]
     Indication: NEUROBLASTOMA
     Dates: start: 20101106
  3. POLARAMINE [Concomitant]
     Route: 048
     Dates: start: 20101204
  4. MUCODYNE [Concomitant]
     Dates: start: 20101204
  5. CYCLOPHOSPHAMIDE [Concomitant]
     Indication: NEUROBLASTOMA
     Dates: start: 20101106
  6. VINCRISTINE SULFATE [Concomitant]
     Indication: NEUROBLASTOMA
     Dates: start: 20101106
  7. THP-ADRIAMYCIN [Concomitant]
     Indication: NEUROBLASTOMA
     Dates: start: 20101106
  8. FUNGUARD [Concomitant]
     Dates: start: 20101201, end: 20101213

REACTIONS (1)
  - ANAPHYLACTIC REACTION [None]
